FAERS Safety Report 4851950-3 (Version None)
Quarter: 2005Q4

REPORT INFORMATION
  Report Type: 
  Country: None (occurrence: None)
  Receive Date: 20051212
  Receipt Date: 20051212
  Transmission Date: 20060501
  Serious: Yes (Hospitalization)
  Sender: FDA-Public Use
  Company Number: None

PATIENT
  Age: 43 Year
  Sex: Male

DRUGS (6)
  1. CITALOPRAM 40 MG (PURPAC) [Suspect]
     Dosage: 1 1/2 TAB QD PO
     Route: 048
     Dates: start: 20040801
  2. CLONAZEPAM [Concomitant]
  3. ABILIFY [Concomitant]
  4. CRESTOR [Concomitant]
  5. TRICOR [Concomitant]
  6. WELLBUTRIN [Concomitant]

REACTIONS (4)
  - ARTHRALGIA [None]
  - DRUG DEPENDENCE [None]
  - OEDEMA PERIPHERAL [None]
  - TINNITUS [None]
